FAERS Safety Report 15864399 (Version 1)
Quarter: 2019Q1

REPORT INFORMATION
  Report Type: Report from Study
  Country: US (occurrence: US)
  Receive Date: 20190124
  Receipt Date: 20190124
  Transmission Date: 20190417
  Serious: Yes (Other)
  Sender: FDA-Public Use
  Company Number: US-TAKEDA-2017TUS007093

PATIENT
  Sex: Female
  Weight: 75.74 kg

DRUGS (2)
  1. VEDOLIZUMAB [Suspect]
     Active Substance: VEDOLIZUMAB
     Indication: COLITIS ULCERATIVE
     Dosage: UNK
     Route: 042
  2. VEDOLIZUMAB [Suspect]
     Active Substance: VEDOLIZUMAB
     Dosage: UNK UNK, Q4WEEKS
     Route: 042

REACTIONS (6)
  - Off label use [Unknown]
  - Surgery [Unknown]
  - Rectal haemorrhage [Unknown]
  - Diverticulitis [Unknown]
  - Weight fluctuation [Unknown]
  - Drug level decreased [Unknown]
